FAERS Safety Report 9773039 (Version 1)
Quarter: 2013Q4

REPORT INFORMATION
  Report Type: Spontaneous
  Country: US (occurrence: None)
  Receive Date: 20131217
  Receipt Date: 20131217
  Transmission Date: 20140711
  Serious: Yes (Hospitalization)
  Sender: FDA-Public Use
  Company Number: FK201305329

PATIENT
  Age: 60 Year
  Sex: Male

DRUGS (1)
  1. DOXORUBICIN [Suspect]
     Indication: HEPATOCELLULAR CARCINOMA

REACTIONS (4)
  - Gastritis erosive [None]
  - Gastric disorder [None]
  - Gastric ulcer haemorrhage [None]
  - Angiogram abnormal [None]
